FAERS Safety Report 8457730-4 (Version None)
Quarter: 2012Q2

REPORT INFORMATION
  Report Type: 
  Country: None (occurrence: None)
  Receive Date: 20120618
  Receipt Date: 20120618
  Transmission Date: 20120825
  Serious: No
  Sender: FDA-Public Use
  Company Number: None

PATIENT
  Age: 66 Year
  Sex: Male
  Weight: 80.7 kg

DRUGS (1)
  1. HEPARIN SODIUM [Suspect]
     Indication: CARDIOPULMONARY BYPASS
     Dosage: 2 ML PRN IV BOLUS
     Route: 040
     Dates: start: 20120614, end: 20120614

REACTIONS (1)
  - DRUG EFFECT DECREASED [None]
